FAERS Safety Report 6384952-9 (Version None)
Quarter: 2009Q4

REPORT INFORMATION
  Report Type: 
  Country: None (occurrence: None)
  Receive Date: 20091002
  Receipt Date: 20090922
  Transmission Date: 20100525
  Serious: Yes (Other)
  Sender: FDA-Public Use
  Company Number: US-JNJFOC-20090906947

PATIENT
  Sex: Male

DRUGS (1)
  1. TAPENTADOL HYDROCHLORIDE [Suspect]
     Indication: PROCEDURAL PAIN
     Dosage: EVERY 4 TO 6 HOURS
     Route: 048

REACTIONS (1)
  - HALLUCINATION [None]
